FAERS Safety Report 6462546-4 (Version None)
Quarter: 2009Q4

REPORT INFORMATION
  Report Type: 
  Country: None (occurrence: None)
  Receive Date: 20091130
  Receipt Date: 20091120
  Transmission Date: 20100525
  Serious: Yes (Other)
  Sender: FDA-Public Use
  Company Number: US-ASTRAZENECA-2009SE28120

PATIENT
  Age: 45 Year
  Sex: Male

DRUGS (1)
  1. PRILOSEC OTC [Suspect]
     Indication: DYSPEPSIA
     Route: 048
     Dates: start: 20091117, end: 20091117

REACTIONS (6)
  - EYE SWELLING [None]
  - HEADACHE [None]
  - PAIN [None]
  - PAIN IN JAW [None]
  - VISION BLURRED [None]
  - VISUAL IMPAIRMENT [None]
